FAERS Safety Report 18588181 (Version 2)
Quarter: 2021Q1

REPORT INFORMATION
  Report Type: Report from Study
  Country: US (occurrence: US)
  Receive Date: 20201207
  Receipt Date: 20210101
  Transmission Date: 20210419
  Serious: No
  Sender: FDA-Public Use
  Company Number: NVSC2020US325239

PATIENT
  Sex: Male

DRUGS (2)
  1. TREPROSTINIL. [Suspect]
     Active Substance: TREPROSTINIL
     Dosage: UNK UNK, CONT (16 NG/KG/MIN)
     Route: 042
     Dates: start: 20201117
  2. TREPROSTINIL. [Suspect]
     Active Substance: TREPROSTINIL
     Indication: PULMONARY ARTERIAL HYPERTENSION
     Dosage: UNK UNK, CONT (14 NG/KG/MIN)
     Route: 042
     Dates: start: 20201117

REACTIONS (2)
  - Diarrhoea [Unknown]
  - Liver disorder [Unknown]
